FAERS Safety Report 4990372-1 (Version None)
Quarter: 2006Q2

REPORT INFORMATION
  Report Type: 
  Country: None (occurrence: None)
  Receive Date: 20060427
  Receipt Date: 20060418
  Transmission Date: 20061013
  Serious: No
  Sender: FDA-Public Use
  Company Number: 06H-163-0307539-00

PATIENT
  Age: 32 Year
  Sex: Female

DRUGS (1)
  1. PHENYTOIN SODIUM [Suspect]
     Indication: CONVULSION PROPHYLAXIS

REACTIONS (10)
  - DRUG HYPERSENSITIVITY [None]
  - DYSPHAGIA [None]
  - HEADACHE [None]
  - LYMPHADENITIS [None]
  - NECROSIS [None]
  - PHARYNGEAL ERYTHEMA [None]
  - PHARYNGOLARYNGEAL PAIN [None]
  - PYREXIA [None]
  - RASH [None]
  - TONSILLAR DISORDER [None]
